FAERS Safety Report 9439111 (Version 2)
Quarter: 2013Q3

REPORT INFORMATION
  Report Type: Report from Study
  Country: DE (occurrence: DE)
  Receive Date: 20130802
  Receipt Date: 20130903
  Transmission Date: 20140515
  Serious: Yes (Hospitalization)
  Sender: FDA-Public Use
  Company Number: PHHO2013DE009933

PATIENT
  Sex: 0

DRUGS (9)
  1. CERTICAN [Suspect]
     Indication: GRAFT VERSUS HOST DISEASE
     Dosage: 1.5- MG 0-0.75 MG
     Dates: start: 20130711
  2. PREDNISONE SANDOZ [Suspect]
     Indication: GRAFT VERSUS HOST DISEASE
     Dosage: 40 MG, UNK
     Dates: start: 20130718
  3. TACROLIMUS [Concomitant]
     Indication: PROPHYLAXIS AGAINST GRAFT VERSUS HOST DISEASE
     Dosage: 0.5 MG, QD
     Dates: start: 20130430
  4. NOXAFIL [Concomitant]
     Indication: ANTIFUNGAL PROPHYLAXIS
     Dosage: 200 MG, TID
     Dates: start: 20130702
  5. ACICLOVIR [Concomitant]
     Indication: ANTIVIRAL PROPHYLAXIS
     Dosage: 400 MG, BID
     Dates: start: 20130424
  6. ATOVAQUONE [Concomitant]
     Indication: TOXOPLASMOSIS PROPHYLAXIS
     Dosage: 750 MG, BID
     Dates: start: 20130424
  7. ATOVAQUONE [Concomitant]
     Indication: ANTIFUNGAL PROPHYLAXIS
  8. TAMSULOSIN [Concomitant]
     Indication: BENIGN PROSTATIC HYPERPLASIA
     Dosage: 0.4 MG, QD
     Dates: start: 20130424
  9. PANTOPRAZOL [Concomitant]
     Indication: PROPHYLAXIS
     Dosage: 40 MG, BID
     Dates: start: 20130618

REACTIONS (1)
  - Graft versus host disease [Unknown]
